FAERS Safety Report 6642087-1 (Version None)
Quarter: 2010Q1

REPORT INFORMATION
  Report Type: 
  Country: None (occurrence: None)
  Receive Date: 20100316
  Receipt Date: 20100302
  Transmission Date: 20100710
  Serious: Yes (Other)
  Sender: FDA-Public Use
  Company Number: 008409

PATIENT
  Sex: Female

DRUGS (1)
  1. GLYCOLAX [Suspect]

REACTIONS (2)
  - DISEASE RECURRENCE [None]
  - INTESTINAL OBSTRUCTION [None]
